FAERS Safety Report 18187251 (Version 1)
Quarter: 2020Q3

REPORT INFORMATION
  Report Type: Spontaneous
  Country: DE (occurrence: DE)
  Receive Date: 20200824
  Receipt Date: 20200824
  Transmission Date: 20201103
  Serious: Yes (Hospitalization)
  Sender: FDA-Public Use
  Company Number: DE-MYLANLABS-2020M1071797

PATIENT
  Age: 64 Year
  Sex: Female
  Weight: 100 kg

DRUGS (15)
  1. ATORVASTATIN [Concomitant]
     Active Substance: ATORVASTATIN
     Dosage: 40 MG, 0?0?1?0, TABLETTEN
     Route: 048
  2. CARVEDILOL. [Concomitant]
     Active Substance: CARVEDILOL
     Dosage: 25 MG, 0.5?0?0.5?0, TABLETTEN
     Route: 048
  3. LEVOTHYROXINENATRIUM TEVA [Concomitant]
     Dosage: 0.05 MG, 1?0?0?0, TABLETTEN
     Route: 048
  4. ACETYLSALICYLIC ACID [Concomitant]
     Active Substance: ASPIRIN
     Dosage: 100 MG, 0?1?0?0, TABLETTEN
     Route: 048
  5. ENALAPRIL [Concomitant]
     Active Substance: ENALAPRIL
     Dosage: 2.5 MG, 2?0?0?0, TABLETTEN
     Route: 048
  6. SPIRONOLACTON [Concomitant]
     Active Substance: SPIRONOLACTONE
     Dosage: 50 MG, 0.5?0?0?0, TABLETTEN
     Route: 048
  7. NALOXONE W/OXYCODONE [Concomitant]
     Active Substance: NALOXONE HYDROCHLORIDE\OXYCODONE HYDROCHLORIDE
     Dosage: 5|10 MG, 1?0?1?0, RETARD?TABLETTEN
     Route: 048
  8. OXYCODON [Concomitant]
     Active Substance: OXYCODONE
     Dosage: 10 20MG/TAG, BEDARF, KAPSELN
     Route: 048
  9. METOCLOPRAMID                      /00041901/ [Concomitant]
     Active Substance: METOCLOPRAMIDE
     Dosage: 10 MG, 1?1?1?0, TABLETTEN
     Route: 048
  10. TORASEMID [Concomitant]
     Active Substance: TORSEMIDE
     Dosage: 10 MG, 2?0?0?0, TABLETTEN
     Route: 048
  11. VENLAFAXIN [Concomitant]
     Active Substance: VENLAFAXINE HYDROCHLORIDE
     Dosage: 150 MG, 1?0?0?0, RETARD?KAPSELN
     Route: 048
  12. PANTOPRAZOL                        /01263201/ [Concomitant]
     Active Substance: PANTOPRAZOLE
     Dosage: 40 MG, 1?0?0?0, KAPSELN
     Route: 048
  13. METAMIZOL                          /06276701/ [Concomitant]
     Active Substance: METAMIZOLE
     Dosage: 500 MG/ML, 20?20?20?20, TROPFEN
     Route: 048
  14. FULVESTRANT. [Suspect]
     Active Substance: FULVESTRANT
     Indication: PRODUCT USED FOR UNKNOWN INDICATION
     Dosage: NK MG, NACH SCHEMA
  15. PALBOCICLIB [Suspect]
     Active Substance: PALBOCICLIB
     Indication: PRODUCT USED FOR UNKNOWN INDICATION
     Dosage: NK MG, NACH SCHEMA

REACTIONS (2)
  - Dyspnoea exertional [Recovering/Resolving]
  - Anaemia [Recovering/Resolving]
